FAERS Safety Report 5489770-1 (Version None)
Quarter: 2007Q4

REPORT INFORMATION
  Report Type: 
  Country: None (occurrence: None)
  Receive Date: 20071018
  Receipt Date: 20070830
  Transmission Date: 20080405
  Serious: Yes (Other)
  Sender: FDA-Public Use
  Company Number: US-PURDUE-USA_2007_0029587

PATIENT
  Sex: Female

DRUGS (1)
  1. OXYCONTIN [Suspect]
     Indication: BACK PAIN

REACTIONS (10)
  - AGGRESSION [None]
  - ASTHENIA [None]
  - DRUG WITHDRAWAL SYNDROME [None]
  - HEADACHE [None]
  - HYPERSOMNIA [None]
  - INSOMNIA [None]
  - PAIN [None]
  - PANIC ATTACK [None]
  - SUICIDAL IDEATION [None]
  - WEIGHT DECREASED [None]
